FAERS Safety Report 21536940 (Version 1)
Quarter: 2022Q4

REPORT INFORMATION
  Report Type: Spontaneous
  Country: US (occurrence: US)
  Receive Date: 20221101
  Receipt Date: 20221101
  Transmission Date: 20230113
  Serious: No
  Sender: FDA-Public Use
  Company Number: US-PERRIGO-22US008593

PATIENT
  Sex: Male

DRUGS (2)
  1. DOXYLAMINE SUCCINATE [Suspect]
     Active Substance: DOXYLAMINE SUCCINATE
     Indication: Insomnia
     Dosage: 12.5 MG, SINGLE
     Route: 048
     Dates: start: 20220612, end: 20220612
  2. MELATONIN [Concomitant]
     Active Substance: MELATONIN
     Indication: Insomnia
     Dosage: UNK, HS
     Route: 065
     Dates: start: 20220612, end: 20220612

REACTIONS (2)
  - Drug effect less than expected [Unknown]
  - Underdose [Unknown]

NARRATIVE: CASE EVENT DATE: 20220612
